FAERS Safety Report 9502889 (Version 1)
Quarter: 2013Q1

REPORT INFORMATION
  Report Type: Spontaneous
  Country: US (occurrence: None)
  Receive Date: 20130225
  Receipt Date: 20130225
  Transmission Date: 20140127
  Serious: No
  Sender: FDA-Public Use
  Company Number: 364554

PATIENT
  Sex: Female
  Weight: 69.4 kg

DRUGS (3)
  1. VICTOZA [Suspect]
     Indication: TYPE 2 DIABETES MELLITUS
     Dates: start: 20120712
  2. AMLODIPINE [Concomitant]
  3. LOSARTAN [Concomitant]

REACTIONS (4)
  - Incorrect storage of drug [None]
  - Microalbuminuria [None]
  - Weight increased [None]
  - Blood glucose increased [None]
